FAERS Safety Report 6493677-0 (Version None)
Quarter: 2009Q4

REPORT INFORMATION
  Report Type: 
  Country: None (occurrence: None)
  Receive Date: 20091214
  Receipt Date: 20091204
  Transmission Date: 20100525
  Serious: Yes (Other)
  Sender: FDA-Public Use
  Company Number: B0611985A

PATIENT
  Age: 40 Year
  Sex: Male

DRUGS (1)
  1. SEROXAT [Suspect]
     Indication: INFLAMMATORY BOWEL DISEASE
     Dosage: 10MG PER DAY
     Route: 048
     Dates: start: 20080101, end: 20090301

REACTIONS (11)
  - BURNING SENSATION [None]
  - DYSPEPSIA [None]
  - FATIGUE [None]
  - HALLUCINATION [None]
  - HEADACHE [None]
  - NAUSEA [None]
  - OFF LABEL USE [None]
  - PARAESTHESIA [None]
  - SENSORY DISTURBANCE [None]
  - VISION BLURRED [None]
  - WITHDRAWAL SYNDROME [None]
